FAERS Safety Report 5019089-4 (Version None)
Quarter: 2006Q2

REPORT INFORMATION
  Report Type: 
  Country: None (occurrence: None)
  Receive Date: 20060606
  Receipt Date: 20050906
  Transmission Date: 20061013
  Serious: Yes (Death, Hospitalization)
  Sender: FDA-Public Use
  Company Number: US-MERCK-0509USA00626

PATIENT
  Age: 81 Year
  Sex: Female

DRUGS (12)
  1. SINGULAIR [Suspect]
     Indication: ASTHMA
     Route: 048
     Dates: start: 20020101, end: 20050401
  2. CALAN [Concomitant]
     Route: 065
  3. K-DUR 10 [Concomitant]
     Route: 048
  4. PRAVACHOL [Concomitant]
     Route: 048
  5. LASIX [Concomitant]
     Route: 065
  6. SYNTHROID [Concomitant]
     Route: 048
  7. CLONIDINE [Concomitant]
     Route: 065
  8. LANOXIN [Concomitant]
     Route: 065
     Dates: end: 20050401
  9. ISORDIL [Concomitant]
     Route: 065
  10. SEREVENT DISK [Concomitant]
     Route: 065
  11. PROVENTIL [Concomitant]
     Route: 065
  12. ASPIRIN [Concomitant]
     Route: 048

REACTIONS (6)
  - ALLERGIC GRANULOMATOUS ANGIITIS [None]
  - ATRIAL FIBRILLATION [None]
  - BRADYCARDIA [None]
  - CELLULITIS [None]
  - DEATH [None]
  - OEDEMA [None]
